FAERS Safety Report 6962181-5 (Version None)
Quarter: 2010Q3

REPORT INFORMATION
  Report Type: 
  Country: None (occurrence: None)
  Receive Date: 20100901
  Receipt Date: 20100901
  Transmission Date: 20110219
  Serious: No
  Sender: FDA-Public Use
  Company Number: None

PATIENT
  Sex: Male
  Weight: 74.1 kg

DRUGS (3)
  1. CARBOPLATIN [Suspect]
     Dosage: 724 MG
     Dates: end: 20100125
  2. ERBITUX [Suspect]
     Dosage: 1229 MG
     Dates: end: 20100201
  3. TAXOL [Suspect]
     Dosage: 378 MG
     Dates: end: 20100125

REACTIONS (1)
  - PYREXIA [None]
